FAERS Safety Report 4799983-X (Version None)
Quarter: 2005Q4

REPORT INFORMATION
  Report Type: 
  Country: None (occurrence: None)
  Receive Date: 20051011
  Receipt Date: 20051011
  Transmission Date: 20060501
  Serious: Yes (Hospitalization)
  Sender: FDA-Public Use
  Company Number: None

PATIENT
  Age: 69 Year
  Sex: Male
  Weight: 88.1339 kg

DRUGS (14)
  1. BEVACIZUMAB - GENENTECH [Suspect]
     Indication: GASTROOESOPHAGEAL CANCER
     Dosage: 15MG/KG IV  EVERY 21 DAY
     Route: 042
     Dates: start: 20050725
  2. BEVACIZUMAB - GENENTECH [Suspect]
     Indication: METASTASIS
     Dosage: 15MG/KG IV  EVERY 21 DAY
     Route: 042
     Dates: start: 20050725
  3. OXALIPLATIN - SANOFI-AVENTIS [Suspect]
     Indication: GASTROOESOPHAGEAL CANCER
     Dosage: 75MG/M2 IV EVERY 21 DAY
     Route: 042
     Dates: start: 20050725
  4. OXALIPLATIN - SANOFI-AVENTIS [Suspect]
     Indication: METASTASIS
     Dosage: 75MG/M2 IV EVERY 21 DAY
     Route: 042
     Dates: start: 20050725
  5. DOCETAXEL - SANOFI-AVENTIS [Suspect]
     Indication: GASTROOESOPHAGEAL CANCER
     Dosage: 70 MG/M2 IV EVERY 21 DAYS
     Route: 042
     Dates: start: 20050725
  6. DOCETAXEL - SANOFI-AVENTIS [Suspect]
     Indication: METASTASIS
     Dosage: 70 MG/M2 IV EVERY 21 DAYS
     Route: 042
     Dates: start: 20050725
  7. FERROUS SULFATE TAB [Concomitant]
  8. MOTRIN [Concomitant]
  9. PERI-COLACE [Concomitant]
  10. XANAX [Concomitant]
  11. MULTI-VITAMIN [Concomitant]
  12. ANTIVERT [Concomitant]
  13. CALCIUM SUPPLEMENT [Concomitant]
  14. ASPIRIN [Concomitant]

REACTIONS (4)
  - DIARRHOEA [None]
  - FALL [None]
  - FATIGUE [None]
  - HAEMOGLOBIN DECREASED [None]
